FAERS Safety Report 6684507-2 (Version None)
Quarter: 2010Q2

REPORT INFORMATION
  Report Type: 
  Country: None (occurrence: None)
  Receive Date: 20100416
  Receipt Date: 20100413
  Transmission Date: 20101027
  Serious: Yes (Hospitalization)
  Sender: FDA-Public Use
  Company Number: MX-ROCHE-572141

PATIENT
  Sex: Female
  Weight: 96 kg

DRUGS (12)
  1. TOCILIZUMAB [Suspect]
     Indication: RHEUMATOID ARTHRITIS
     Dosage: DOSAGE FORM: INFUSION SOLUTION; TOTAL MONTHLY DOSE: 291.2MG
     Route: 042
     Dates: start: 20050629, end: 20080623
  2. TOCILIZUMAB [Suspect]
     Route: 042
     Dates: start: 20090622
  3. TOCILIZUMAB [Suspect]
     Route: 042
     Dates: start: 20090122
  4. TOCILIZUMAB [Suspect]
     Route: 042
     Dates: start: 20090819
  5. TOCILIZUMAB [Suspect]
     Route: 042
     Dates: start: 20091003
  6. BLINDED TOCILIZUMAB [Suspect]
     Indication: RHEUMATOID ARTHRITIS
     Dosage: DOSAGE FORM: INFUSION, SOLUTION. BLINDED TREATMENT COMPLETE.
     Route: 042
  7. METHOTREXATE [Suspect]
     Indication: DRUG USE FOR UNKNOWN INDICATION
     Route: 048
     Dates: start: 20030302
  8. PREDNISONE [Suspect]
     Indication: DRUG USE FOR UNKNOWN INDICATION
     Dosage: REPORTED: CPT 26 JAN 2008.
     Route: 048
     Dates: start: 20040115
  9. DICLOFENAC SODIUM [Concomitant]
     Route: 048
     Dates: start: 20050101
  10. ENALAPRIL MALEATE [Concomitant]
     Dates: start: 19910701, end: 20081121
  11. ENALAPRIL MALEATE [Concomitant]
     Dates: start: 20080625, end: 20100318
  12. METOPROLOL TARTRATE [Concomitant]
     Dates: start: 20070917

REACTIONS (1)
  - DIVERTICULAR PERFORATION [None]
